FAERS Safety Report 16758794 (Version 6)
Quarter: 2019Q4

REPORT INFORMATION
  Report Type: Spontaneous
  Country: US (occurrence: US)
  Receive Date: 20190830
  Receipt Date: 20191112
  Transmission Date: 20200122
  Serious: Yes (Hospitalization)
  Sender: FDA-Public Use
  Company Number: US-CELGENEUS-USA-20190809227

PATIENT
  Age: 7 Year
  Sex: Male

DRUGS (14)
  1. THALOMID [Suspect]
     Active Substance: THALIDOMIDE
     Indication: EPENDYMOMA MALIGNANT
     Dosage: 50 MILLIGRAM
     Route: 048
     Dates: start: 20190801, end: 20190819
  2. THALOMID [Suspect]
     Active Substance: THALIDOMIDE
     Indication: PRODUCT USE ISSUE
     Dosage: 50 MILLIGRAM
     Route: 048
     Dates: start: 201908
  3. LEVOTHYROXIN [Concomitant]
     Active Substance: LEVOTHYROXINE
     Indication: PRODUCT USED FOR UNKNOWN INDICATION
     Route: 065
  4. THALOMID [Suspect]
     Active Substance: THALIDOMIDE
     Dosage: 100 MILLIGRAM
     Route: 048
     Dates: start: 201909
  5. THALOMID [Suspect]
     Active Substance: THALIDOMIDE
     Dosage: 150 MILLIGRAM
     Route: 048
     Dates: start: 201910
  6. EMLA [Concomitant]
     Active Substance: LIDOCAINE\PRILOCAINE
     Indication: PRODUCT USED FOR UNKNOWN INDICATION
     Route: 065
  7. DESONIDE. [Concomitant]
     Active Substance: DESONIDE
     Indication: PRODUCT USED FOR UNKNOWN INDICATION
     Route: 065
  8. SYNTHROID [Concomitant]
     Active Substance: LEVOTHYROXINE SODIUM
     Indication: HYPOTHYROIDISM
     Route: 048
     Dates: start: 2019
  9. MIRALAX [Concomitant]
     Active Substance: POLYETHYLENE GLYCOL 3350
     Indication: CONSTIPATION
     Dosage: 17 GRAM
     Route: 048
     Dates: start: 20190815
  10. TRIAMCINOLONE [Concomitant]
     Active Substance: TRIAMCINOLONE
     Indication: PRODUCT USED FOR UNKNOWN INDICATION
     Route: 065
  11. FLUOCINOLONE [Concomitant]
     Active Substance: FLUOCINOLONE
     Indication: ANAEMIA
     Route: 065
     Dates: start: 20190418
  12. FLUOCINOLONE ACETONIDE. [Concomitant]
     Active Substance: FLUOCINOLONE ACETONIDE
     Indication: PRODUCT USED FOR UNKNOWN INDICATION
     Route: 065
  13. ETOPOSIDE. [Concomitant]
     Active Substance: ETOPOSIDE
     Indication: EPENDYMOMA
     Dosage: 500 MILLIGRAM
     Route: 065
     Dates: start: 20190801, end: 20190814
  14. CELEBREX [Concomitant]
     Active Substance: CELECOXIB
     Indication: EPENDYMOMA
     Dosage: 200 MILLIGRAM
     Route: 048
     Dates: start: 20190801

REACTIONS (6)
  - Febrile neutropenia [Recovered/Resolved]
  - Haematocrit decreased [Recovered/Resolved]
  - Neutrophil count decreased [Recovered/Resolved]
  - Haemoglobin decreased [Recovered/Resolved]
  - Rhinovirus infection [Recovered/Resolved]
  - White blood cell count decreased [Recovered/Resolved]

NARRATIVE: CASE EVENT DATE: 20190820
